FAERS Safety Report 9372245 (Version 1)
Quarter: 2013Q2

REPORT INFORMATION
  Report Type: Spontaneous
  Country: US (occurrence: None)
  Receive Date: 20130625
  Receipt Date: 20130625
  Transmission Date: 20140414
  Serious: Yes (Hospitalization)
  Sender: FDA-Public Use
  Company Number: US-000726

PATIENT
  Age: 68 Year
  Sex: Female

DRUGS (20)
  1. GATTEX [Suspect]
     Indication: SHORT-BOWEL SYNDROME
     Route: 058
     Dates: start: 2013
  2. APPLE PECTIN [Concomitant]
  3. ADVIL /00109201/ [Concomitant]
  4. NORMAL SALINE [Concomitant]
  5. MAGNESIUM [Concomitant]
  6. IMODIUM [Concomitant]
  7. PANTOPRAZOLE [Concomitant]
  8. VITAMIN D3 [Concomitant]
  9. ASPIRIN [Concomitant]
  10. BIOTIN [Concomitant]
  11. VITAMIN B12 [Concomitant]
  12. BETA CAROTENE [Concomitant]
  13. CALCIUM CITRATE WITH VITAMIN D [Concomitant]
  14. FOLIC ACID [Concomitant]
  15. IRON [Concomitant]
  16. ASCORBIC ACID [Concomitant]
  17. MULTIVITAMIN [Concomitant]
  18. ZINC [Concomitant]
  19. BENEFIBER /00677201/ [Concomitant]
  20. PROBITOTIC /06395501/ [Concomitant]

REACTIONS (4)
  - Chills [None]
  - Pyrexia [None]
  - Nausea [None]
  - Device related infection [None]
